FAERS Safety Report 11247231 (Version 1)
Quarter: 2015Q3

REPORT INFORMATION
  Report Type: Spontaneous
  Country: FR (occurrence: FR)
  Receive Date: 20150708
  Receipt Date: 20150708
  Transmission Date: 20151125
  Serious: Yes (Other)
  Sender: FDA-Public Use
  Company Number: FR-PFIZER INC-2015223344

PATIENT
  Age: 82 Year
  Sex: Male

DRUGS (1)
  1. AMLOR [Suspect]
     Active Substance: AMLODIPINE BESYLATE

REACTIONS (3)
  - Metastasis [Unknown]
  - Pulmonary embolism [Unknown]
  - Pancreatic carcinoma [Unknown]
